FAERS Safety Report 23544715 (Version 2)
Quarter: 2024Q2

REPORT INFORMATION
  Report Type: Spontaneous
  Country: US (occurrence: US)
  Receive Date: 20240220
  Receipt Date: 20240416
  Transmission Date: 20240716
  Serious: Yes (Other)
  Sender: FDA-Public Use
  Company Number: US-PFIZER INC-202400042978

PATIENT
  Age: 73 Year
  Sex: Female

DRUGS (23)
  1. IBRANCE [Suspect]
     Active Substance: PALBOCICLIB
     Dosage: 125 MG, CYCLIC (ONE 125MG TABLET ORALLY DAILY, 3 WEEKS ON, ONE WEEK OFF)
     Route: 048
     Dates: start: 20240206
  2. IBRANCE [Suspect]
     Active Substance: PALBOCICLIB
     Dosage: 100
     Dates: start: 2024
  3. IBRANCE [Suspect]
     Active Substance: PALBOCICLIB
     Dosage: TAKE 1 TABLET (75MG) DAILY TAKE ON DAYS 1 THROUGH 21 OF A 28 DAY CYCLE
     Dates: start: 2024
  4. ZOMETA [Suspect]
     Active Substance: ZOLEDRONIC ACID
     Dosage: UNK
     Dates: start: 202402
  5. CELEBREX [Concomitant]
     Active Substance: CELECOXIB
  6. SYNTHROID [Concomitant]
     Active Substance: LEVOTHYROXINE SODIUM
     Dosage: UNK
  7. FEMARA [Concomitant]
     Active Substance: LETROZOLE
  8. NEXIUM I.V. [Concomitant]
     Active Substance: ESOMEPRAZOLE SODIUM
     Dosage: UNK
  9. LEXAPRO [Concomitant]
     Active Substance: ESCITALOPRAM OXALATE
     Dosage: UNK
  10. FERROUS SULFATE [Concomitant]
     Active Substance: FERROUS SULFATE
     Dosage: UNK
  11. HERBALS\TURMERIC [Concomitant]
     Active Substance: HERBALS\TURMERIC
     Dosage: UNK
  12. FISH OIL [Concomitant]
     Active Substance: FISH OIL
     Dosage: UNK
  13. CALCIUM\CHOLECALCIFEROL [Concomitant]
     Active Substance: CALCIUM\CHOLECALCIFEROL
     Dosage: 1000 + D3
  14. MULTIVITAMIN [ASCORBIC ACID;NICOTINAMIDE;RETINOL;RIBOFLAVIN;THIAMINE;V [Concomitant]
     Dosage: MULTIVITAMIN 50 PLUS
  15. VITAMIN D2 [Concomitant]
     Active Substance: ERGOCALCIFEROL
     Dosage: UNK
  16. MAGNESIUM [Concomitant]
     Active Substance: MAGNESIUM
     Dosage: UNK
  17. ZOCOR [Concomitant]
     Active Substance: SIMVASTATIN
     Dosage: UNK
  18. TYLENOL [Concomitant]
     Active Substance: ACETAMINOPHEN
     Dosage: UNK
  19. VOLTAREN ARTHRITIS PAIN [Concomitant]
     Active Substance: DICLOFENAC SODIUM
     Dosage: UNK
  20. DILAUDID [Concomitant]
     Active Substance: HYDROMORPHONE HYDROCHLORIDE
     Dosage: UNK
  21. XGEVA [Concomitant]
     Active Substance: DENOSUMAB
     Dosage: UNK
  22. LIPOSOMAL D3 [Concomitant]
     Dosage: UNK
  23. CODEINE [Concomitant]
     Active Substance: CODEINE
     Dosage: UNK

REACTIONS (5)
  - Back pain [Unknown]
  - Full blood count decreased [Unknown]
  - Pain [Not Recovered/Not Resolved]
  - Weight decreased [Unknown]
  - Skin disorder [Unknown]

NARRATIVE: CASE EVENT DATE: 20240207
